FAERS Safety Report 7030688-0 (Version None)
Quarter: 2010Q4

REPORT INFORMATION
  Report Type: 
  Country: None (occurrence: None)
  Receive Date: 20101006
  Receipt Date: 20101005
  Transmission Date: 20110411
  Serious: Yes (Other)
  Sender: FDA-Public Use
  Company Number: US-JNJFOC-20070703138

PATIENT
  Sex: Female

DRUGS (2)
  1. MOTRIN IB [Suspect]
  2. MOTRIN IB [Suspect]
     Indication: PRODUCT USED FOR UNKNOWN INDICATION
     Dosage: 1/2 OF 200 MG CAPLET

REACTIONS (3)
  - INCORRECT DRUG DOSAGE FORM ADMINISTERED [None]
  - LOSS OF CONSCIOUSNESS [None]
  - WRONG TECHNIQUE IN DRUG USAGE PROCESS [None]
